FAERS Safety Report 5502145-1 (Version None)
Quarter: 2007Q4

REPORT INFORMATION
  Report Type: 
  Country: None (occurrence: None)
  Receive Date: 20071030
  Receipt Date: 20071026
  Transmission Date: 20080405
  Serious: Yes (Death)
  Sender: FDA-Public Use
  Company Number: AU-PURDUE-USA_2007_0029183

PATIENT
  Age: 40 Year
  Sex: Female

DRUGS (1)
  1. OXYCONTIN [Suspect]
     Indication: CANCER PAIN
     Dosage: 400 MG, DAILY
     Route: 048

REACTIONS (3)
  - DEATH [None]
  - DRY EYE [None]
  - FOREIGN BODY SENSATION IN EYES [None]
